FAERS Safety Report 16788985 (Version 3)
Quarter: 2020Q2

REPORT INFORMATION
  Report Type: Report from Study
  Country: JP (occurrence: JP)
  Receive Date: 20190910
  Receipt Date: 20200622
  Transmission Date: 20200713
  Serious: Yes (Hospitalization, Other)
  Sender: FDA-Public Use
  Company Number: JP-GLAXOSMITHKLINE-JP2017JPN098293

PATIENT
  Sex: Male

DRUGS (18)
  1. REBAMIPIDE [Concomitant]
     Active Substance: REBAMIPIDE
     Indication: PAIN PROPHYLAXIS
     Dosage: UNK
     Dates: start: 20181203, end: 20181207
  2. EPZICOM [Suspect]
     Active Substance: ABACAVIR SULFATE\LAMIVUDINE
     Indication: HIV INFECTION
     Dosage: 1 DF, 1D
     Route: 048
     Dates: start: 20151211
  3. ZITHROMAC [Suspect]
     Active Substance: AZITHROMYCIN DIHYDRATE
     Indication: OPPORTUNISTIC INFECTION PROPHYLAXIS
     Dosage: 1200 MG, QD
     Route: 065
     Dates: start: 20151209, end: 20151213
  4. BENAMBAX [Concomitant]
     Active Substance: PENTAMIDINE
     Indication: PROPHYLAXIS
     Dosage: UNK
     Dates: start: 20151224, end: 20160331
  5. DOLUTEGRAVIR [Suspect]
     Active Substance: DOLUTEGRAVIR
     Indication: HIV INFECTION
     Dosage: 50 MG, 1D
     Route: 048
     Dates: start: 20160106
  6. ISENTRESS [Concomitant]
     Active Substance: RALTEGRAVIR POTASSIUM
     Indication: HIV INFECTION
     Dosage: 800 MG, 1D
     Dates: start: 20151211, end: 20160105
  7. LOXOPROFEN SODIUM HYDRATE TABLET [Concomitant]
     Indication: PAIN PROPHYLAXIS
     Dosage: UNK
     Dates: start: 20180919, end: 20190128
  8. BENAMBAX [Concomitant]
     Active Substance: PENTAMIDINE
     Dosage: UNK
     Dates: start: 20160401, end: 20160511
  9. BAKTAR COMBINATION TABLETS [Concomitant]
     Active Substance: SULFAMETHOXAZOLE\TRIMETHOPRIM
     Indication: PROPHYLAXIS
     Dosage: 1 DF, QD
     Dates: start: 20160511
  10. LOPERAMIDE HYDROCHLORIDE CAPSULE [Concomitant]
     Indication: PROPHYLAXIS
     Dosage: UNK
     Dates: start: 20170630
  11. CEFAZOLIN SODIUM INJECTION [Concomitant]
     Indication: INFECTION PROPHYLAXIS
     Dosage: UNK
     Dates: start: 20181203, end: 20181203
  12. ZITHROMAC [Suspect]
     Active Substance: AZITHROMYCIN DIHYDRATE
     Indication: MYCOBACTERIUM AVIUM COMPLEX INFECTION
     Dosage: 1200 MG, QD
     Route: 065
     Dates: start: 20151224, end: 20151224
  13. ZITHROMAC [Suspect]
     Active Substance: AZITHROMYCIN DIHYDRATE
     Dosage: 600 MG, QD
     Route: 065
     Dates: start: 20160119
  14. MYCOBUTIN [Suspect]
     Active Substance: RIFABUTIN
     Indication: MYCOBACTERIUM AVIUM COMPLEX INFECTION
     Dosage: 300 MG, QD
     Route: 065
     Dates: start: 20160119
  15. ESANBUTOL [Suspect]
     Active Substance: ETHAMBUTOL HYDROCHLORIDE
     Indication: MYCOBACTERIUM AVIUM COMPLEX INFECTION
     Dosage: 1000 MG, QD
     Route: 065
     Dates: start: 20160119
  16. MS REISHIPPU [Concomitant]
     Active Substance: CAMPHOR\MENTHOL\METHYL SALICYLATE
     Indication: PAIN PROPHYLAXIS
     Dosage: UNK
     Dates: start: 20180919, end: 20190128
  17. LAC-B GRANULAR POWDER N [Concomitant]
     Indication: PROPHYLAXIS
     Dosage: UNK
     Dates: start: 20180110, end: 20180515
  18. INFLUENZA HA VACCINE [Concomitant]
     Active Substance: INFLUENZA VIRUS VACCINE
     Indication: PROPHYLAXIS
     Dosage: UNK
     Dates: start: 20181128, end: 20181128

REACTIONS (8)
  - Mycobacterium avium complex infection [Recovering/Resolving]
  - Oropharyngeal candidiasis [Recovered/Resolved]
  - Deafness traumatic [Not Recovered/Not Resolved]
  - Osteomyelitis [Recovered/Resolved]
  - Pancytopenia [Not Recovered/Not Resolved]
  - Oesophageal candidiasis [Recovered/Resolved]
  - Pain in extremity [Recovered/Resolved]
  - Seasonal allergy [Not Recovered/Not Resolved]

NARRATIVE: CASE EVENT DATE: 20151216
